FAERS Safety Report 16088526 (Version 4)
Quarter: 2019Q2

REPORT INFORMATION
  Report Type: Spontaneous
  Country: US (occurrence: US)
  Receive Date: 20190319
  Receipt Date: 20190627
  Transmission Date: 20190711
  Serious: Yes (Hospitalization)
  Sender: FDA-Public Use
  Company Number: US-PFIZER INC-2019107431

PATIENT
  Age: 63 Year
  Sex: Female

DRUGS (4)
  1. TOVIAZ [Suspect]
     Active Substance: FESOTERODINE FUMARATE
     Dosage: TAKES 8MG ONE DAY AND 4MG THE OTHER DAY
  2. TOVIAZ [Suspect]
     Active Substance: FESOTERODINE FUMARATE
     Indication: URINARY INCONTINENCE
     Dosage: TAKES 8MG ONE DAY AND 4MG THE OTHER DAY
  3. TOVIAZ [Suspect]
     Active Substance: FESOTERODINE FUMARATE
     Dosage: 8 MG, 1X/DAY
     Dates: start: 2018, end: 201903
  4. TOVIAZ [Suspect]
     Active Substance: FESOTERODINE FUMARATE
     Dosage: 4 MG, 1X/DAY

REACTIONS (6)
  - Dry mouth [Recovered/Resolved]
  - Blood urea increased [Unknown]
  - Diarrhoea [Not Recovered/Not Resolved]
  - Blood creatinine increased [Unknown]
  - Drug ineffective [Unknown]
  - Dysphonia [Recovered/Resolved]
